FAERS Safety Report 8282393-0 (Version None)
Quarter: 2012Q2

REPORT INFORMATION
  Report Type: 
  Country: None (occurrence: None)
  Receive Date: 20120413
  Receipt Date: 20120411
  Transmission Date: 20120825
  Serious: Yes (Death)
  Sender: FDA-Public Use
  Company Number: US-TEVA-332814USA

PATIENT
  Sex: Male

DRUGS (5)
  1. VICODIN [Concomitant]
  2. PAROXETINE HCL [Concomitant]
  3. CLONAZEPAM [Suspect]
     Indication: DEPRESSION
  4. CLONAZEPAM [Suspect]
     Indication: ANXIETY
  5. MIRTAZAPINE [Concomitant]

REACTIONS (2)
  - WRONG TECHNIQUE IN DRUG USAGE PROCESS [None]
  - COMPLETED SUICIDE [None]
